FAERS Safety Report 8251098-4 (Version None)
Quarter: 2012Q2

REPORT INFORMATION
  Report Type: 
  Country: None (occurrence: None)
  Receive Date: 20120402
  Receipt Date: 20120329
  Transmission Date: 20120825
  Serious: Yes (Other)
  Sender: FDA-Public Use
  Company Number: DK-PFIZER INC-2012080777

PATIENT
  Age: 60 Year
  Sex: Male
  Weight: 78 kg

DRUGS (2)
  1. LITHIUM CITRATE [Concomitant]
     Indication: BIPOLAR I DISORDER
     Route: 048
     Dates: start: 19850901, end: 20120319
  2. VARENICLINE TARTRATE [Suspect]
     Indication: SMOKING CESSATION THERAPY
     Dosage: 1 MG, 2X/DAY
     Route: 048
     Dates: start: 20100829, end: 20110701

REACTIONS (3)
  - TREMOR [None]
  - MEMORY IMPAIRMENT [None]
  - MENTAL STATUS CHANGES [None]
